FAERS Safety Report 5032476-3 (Version None)
Quarter: 2006Q2

REPORT INFORMATION
  Report Type: 
  Country: None (occurrence: None)
  Receive Date: 20060622
  Receipt Date: 20060614
  Transmission Date: 20061013
  Serious: Yes (Other)
  Sender: FDA-Public Use
  Company Number: PHEH2006US07809

PATIENT

DRUGS (1)
  1. EXJADE [Suspect]
     Dosage: UNK, QD
     Route: 048

REACTIONS (1)
  - ERYTHEMA MULTIFORME [None]
